FAERS Safety Report 23280071 (Version 1)
Quarter: 2023Q4

REPORT INFORMATION
  Report Type: Spontaneous
  Country: RO (occurrence: RO)
  Receive Date: 20231210
  Receipt Date: 20231210
  Transmission Date: 20240110
  Serious: Yes (Other)
  Sender: FDA-Public Use
  Company Number: RO-Accord-393722

PATIENT
  Age: 29 Year
  Sex: Male

DRUGS (3)
  1. ETOPOSIDE [Suspect]
     Active Substance: ETOPOSIDE
     Indication: Germ cell cancer
     Dosage: FOUR CYCLES
  2. BLEOMYCIN [Suspect]
     Active Substance: BLEOMYCIN SULFATE
     Indication: Germ cell cancer
     Dosage: FOUR CYCLES
  3. PLATINUM [Suspect]
     Active Substance: PLATINUM
     Indication: Germ cell cancer
     Dosage: FOUR CYCLES

REACTIONS (1)
  - Growing teratoma syndrome [Unknown]
